FAERS Safety Report 7913495-3 (Version None)
Quarter: 2011Q4

REPORT INFORMATION
  Report Type: 
  Country: None (occurrence: None)
  Receive Date: 20111110
  Receipt Date: 20111028
  Transmission Date: 20120403
  Serious: Yes (Other)
  Sender: FDA-Public Use
  Company Number: 2010SP044289

PATIENT
  Age: 34 Year
  Sex: Female
  Weight: 68.0396 kg

DRUGS (1)
  1. IMPLANON [Suspect]
     Indication: HAEMORRHAGE
     Dosage: 1 DF ; 1 DF
     Dates: start: 20040824

REACTIONS (1)
  - DEVICE DISLOCATION [None]
